FAERS Safety Report 7322510-X (Version None)
Quarter: 2011Q1

REPORT INFORMATION
  Report Type: 
  Country: None (occurrence: None)
  Receive Date: 20110301
  Receipt Date: 20110207
  Transmission Date: 20110831
  Serious: Yes (Life-Threatening, Hospitalization, Other)
  Sender: FDA-Public Use
  Company Number: US-BAYER-201027579NA

PATIENT
  Sex: Female

DRUGS (8)
  1. KEFLEX [Concomitant]
     Indication: INFECTION
     Dosage: 500 MG, BID
     Route: 048
     Dates: start: 20080601, end: 20080703
  2. YASMIN [Suspect]
     Indication: PRODUCT USED FOR UNKNOWN INDICATION
     Dates: start: 20080115
  3. YAZ [Suspect]
     Indication: PRODUCT USED FOR UNKNOWN INDICATION
     Dates: start: 20080115
  4. DICLOFENAC POTASSIUM [Concomitant]
     Indication: MIGRAINE
     Dosage: 50 MG, UNK
     Route: 048
  5. DARVOCET [Concomitant]
     Indication: PAIN
     Dosage: ONE AS NEEDED, PRN
     Route: 048
  6. AXERT [Concomitant]
     Indication: MIGRAINE
     Dosage: 12.5 MG, PRN
     Route: 048
  7. SYNTHROID [Concomitant]
     Indication: HYPOTHYROIDISM
     Dosage: 50 MCG/24HR, QD
     Route: 048
  8. VICODIN [Concomitant]
     Indication: PROCEDURAL PAIN
     Dosage: 5/500 1-2 TAB QID FOR PAIN
     Dates: start: 20080601, end: 20080703

REACTIONS (6)
  - DEEP VEIN THROMBOSIS [None]
  - PULMONARY EMBOLISM [None]
  - CHEST PAIN [None]
  - BREAST CANCER [None]
  - DYSPNOEA [None]
  - BACK PAIN [None]
